FAERS Safety Report 4927242-0 (Version None)
Quarter: 2006Q1

REPORT INFORMATION
  Report Type: 
  Country: None (occurrence: None)
  Receive Date: 20060228
  Receipt Date: 20050301
  Transmission Date: 20060701
  Serious: No
  Sender: FDA-Public Use
  Company Number: 2005/00483

PATIENT
  Age: 43 Year
  Sex: Female
  Weight: 52.3 kg

DRUGS (1)
  1. IMITREX [Suspect]
     Indication: DRUG USE FOR UNKNOWN INDICATION
     Route: 065

REACTIONS (1)
  - CHEST PAIN [None]
